FAERS Safety Report 19052057 (Version 1)
Quarter: 2021Q1

REPORT INFORMATION
  Report Type: Spontaneous
  Country: GB (occurrence: GB)
  Receive Date: 20210324
  Receipt Date: 20210324
  Transmission Date: 20210420
  Serious: Yes (Other)
  Sender: FDA-Public Use
  Company Number: GB-MYLANLABS-2021M1015258

PATIENT
  Age: 80 Year
  Sex: Male
  Weight: 85 kg

DRUGS (19)
  1. DOXYCYCLINE. [Suspect]
     Active Substance: DOXYCYCLINE
     Indication: PRODUCT USED FOR UNKNOWN INDICATION
     Dosage: 100 MILLIGRAM
     Dates: start: 20210309
  2. LOSARTAN. [Concomitant]
     Active Substance: LOSARTAN
     Dosage: 1 DOSAGE FORM, QD
     Dates: start: 20201105
  3. SALBUTAMOL [Concomitant]
     Active Substance: ALBUTEROL
     Dosage: 4 OR 6 HOURLY
     Dates: start: 20201207
  4. HYDROCORTISONE. [Concomitant]
     Active Substance: HYDROCORTISONE
     Dosage: APPLY ONCE DAILY IF REQUIRED
     Dates: start: 20201023
  5. PREDNISOLONE. [Concomitant]
     Active Substance: PREDNISOLONE
     Dosage: 8 DOSAGE FORM, QD
     Dates: start: 20201120
  6. SALAMOL                            /00139501/ [Concomitant]
     Active Substance: ALBUTEROL
     Dosage: 2 DOSAGE FORM, PRN
     Route: 055
     Dates: start: 20201207
  7. CAPASAL [Concomitant]
     Dosage: USE DAILY AS DIRECTED
     Dates: start: 20210219
  8. EZETIMIBE. [Concomitant]
     Active Substance: EZETIMIBE
     Indication: BLOOD CHOLESTEROL INCREASED
     Dosage: 1 DOSAGE FORM, QD
     Dates: start: 20201105
  9. TEMAZEPAM. [Concomitant]
     Active Substance: TEMAZEPAM
     Dosage: AT NIGHT
     Dates: start: 20201023
  10. FOSTAIR [Concomitant]
     Active Substance: BECLOMETHASONE\FORMOTEROL
     Indication: CHRONIC OBSTRUCTIVE PULMONARY DISEASE
     Dosage: 2 DOSAGE FORM, BID
     Route: 055
     Dates: start: 20201120
  11. METFORMIN [Concomitant]
     Active Substance: METFORMIN HYDROCHLORIDE
     Indication: DIABETES MELLITUS
     Dosage: 2 DOSAGE FORM, BID
     Dates: start: 20201105
  12. CARBOCISTEINE [Concomitant]
     Active Substance: CARBOCYSTEINE
     Indication: SPUTUM ABNORMAL
     Dosage: TWO THREE TIMES A DAY
     Dates: start: 20201002
  13. CLOPIDOGREL [Concomitant]
     Active Substance: CLOPIDOGREL BISULFATE
     Dosage: IN THE MORNING WITH BREAKFAST
     Dates: start: 20201105
  14. LANSOPRAZOLE. [Concomitant]
     Active Substance: LANSOPRAZOLE
     Dosage: 1 DOSAGE FORM, QD
     Dates: start: 20201023
  15. DIPROSALIC [Concomitant]
     Active Substance: BETAMETHASONE DIPROPIONATE
     Dosage: AS DIRECTED
     Dates: start: 20201023
  16. AMOXICILLIN. [Concomitant]
     Active Substance: AMOXICILLIN
     Dosage: 1 DOSAGE FORM, TID
     Dates: start: 20201120
  17. ATORVASTATIN [Concomitant]
     Active Substance: ATORVASTATIN
     Indication: BLOOD CHOLESTEROL INCREASED
     Dosage: AT NIGHT
     Dates: start: 20201105
  18. DOXYCYCLINE. [Concomitant]
     Active Substance: DOXYCYCLINE
     Dosage: TWO NOW THEN ONE DAILY
     Dates: start: 20210305
  19. SPIRIVA [Concomitant]
     Active Substance: TIOTROPIUM BROMIDE MONOHYDRATE
     Indication: CHRONIC OBSTRUCTIVE PULMONARY DISEASE
     Dosage: AS PER COPD NURSE^S ADVICE
     Route: 055
     Dates: start: 20210305

REACTIONS (2)
  - Pain in extremity [Recovering/Resolving]
  - Paralysis [Unknown]

NARRATIVE: CASE EVENT DATE: 202103
